FAERS Safety Report 5353510-7 (Version None)
Quarter: 2007Q2

REPORT INFORMATION
  Report Type: 
  Country: None (occurrence: None)
  Receive Date: 20070612
  Receipt Date: 20070604
  Transmission Date: 20071010
  Serious: Yes (Other)
  Sender: FDA-Public Use
  Company Number: US-JNJFOC-20070601218

PATIENT
  Age: 47 Year
  Sex: Male
  Weight: 89.81 kg

DRUGS (1)
  1. INVEGA [Suspect]
     Indication: SCHIZOPHRENIA
     Route: 048

REACTIONS (2)
  - DEPRESSION [None]
  - WEIGHT INCREASED [None]
